FAERS Safety Report 10412031 (Version 1)
Quarter: 2014Q2

REPORT INFORMATION
  Report Type: Spontaneous
  Country: US (occurrence: None)
  Receive Date: 20140604
  Receipt Date: 20140604
  Transmission Date: 20141212
  Serious: Yes (Hospitalization)
  Sender: FDA-Public Use
  Company Number: 20130107CINRY3818

PATIENT
  Age: 44 Year
  Sex: Female
  Weight: 149.69 kg

DRUGS (7)
  1. PRILOSEC (OMEPRAZOLE) [Concomitant]
  2. XANAX (ALPRAZOLAM) [Concomitant]
  3. LEVOTHYROXIN (LEVOTHYROXINE SODIUM) [Concomitant]
  4. CINRYZE [Suspect]
     Indication: HEREDITARY ANGIOEDEMA
     Dosage: EVERY 2 TO 2.5 DAYS
     Route: 042
  5. CINRYZE [Suspect]
     Indication: PROPHYLAXIS
     Dosage: EVERY 2 TO 2.5 DAYS
     Route: 042
  6. LIPITOR (ATORVASTATIN CALCIUM) [Concomitant]
  7. GLUCOPHAGE (METFORMIN HYDROCHLORIDE) [Concomitant]

REACTIONS (6)
  - Staphylococcal sepsis [None]
  - Pneumonia [None]
  - Device related infection [None]
  - Hereditary angioedema [None]
  - Therapy change [None]
  - Incorrect drug administration duration [None]
